FAERS Safety Report 5660715-4 (Version None)
Quarter: 2008Q1

REPORT INFORMATION
  Report Type: 
  Country: None (occurrence: None)
  Receive Date: 20080311
  Receipt Date: 20080229
  Transmission Date: 20080703
  Serious: Yes (Hospitalization)
  Sender: FDA-Public Use
  Company Number: TR-ELI_LILLY_AND_COMPANY-TR200803000145

PATIENT
  Age: 52 Year
  Sex: Female
  Weight: 100 kg

DRUGS (2)
  1. HUMALOG [Suspect]
     Dosage: 20 IU, 3/D
     Route: 058
     Dates: start: 20010101
  2. ATORVASTATIN CALCIUM [Concomitant]
     Indication: ARTERIOSCLEROSIS
     Dosage: UNK UNK, DAILY (1/D)
     Route: 048
     Dates: start: 20010101

REACTIONS (3)
  - BLOOD GLUCOSE INCREASED [None]
  - OEDEMA PERIPHERAL [None]
  - SWELLING [None]
